FAERS Safety Report 5328773-4 (Version None)
Quarter: 2007Q2

REPORT INFORMATION
  Report Type: 
  Country: None (occurrence: None)
  Receive Date: 20070518
  Receipt Date: 20070517
  Transmission Date: 20071010
  Serious: Yes (Other)
  Sender: FDA-Public Use
  Company Number: JP-BRISTOL-MYERS SQUIBB COMPANY-13784467

PATIENT
  Age: 2 Year
  Sex: Female

DRUGS (2)
  1. CISPLATIN [Suspect]
     Indication: ASTROCYTOMA
  2. ETOPOSIDE [Suspect]
     Indication: ASTROCYTOMA

REACTIONS (3)
  - PYREXIA [None]
  - RENAL SALT-WASTING SYNDROME [None]
  - TREMOR [None]
